FAERS Safety Report 6191485-1 (Version None)
Quarter: 2009Q2

REPORT INFORMATION
  Report Type: 
  Country: None (occurrence: None)
  Receive Date: 20090515
  Receipt Date: 20090511
  Transmission Date: 20091009
  Serious: Yes (Death, Other)
  Sender: FDA-Public Use
  Company Number: TR-JNJFOC-20090500501

PATIENT
  Age: 35 Year
  Sex: Female

DRUGS (7)
  1. HALOPERIDOL [Suspect]
     Indication: AGITATION
     Dosage: SINGLE DOSE
     Route: 030
  2. DIAZEPAM [Suspect]
     Indication: MUSCLE SPASMS
     Route: 030
  3. VENLAFAXINE HCL [Suspect]
     Indication: DEPRESSION
     Route: 065
  4. INSULATARD NPH HUMAN [Concomitant]
     Route: 065
  5. CEFTRIAXONE [Concomitant]
     Route: 042
  6. CLONAZEPAM [Concomitant]
     Route: 065
  7. PIPERACILLIN SODIUM AND TAZOBACTAM SODIUM [Concomitant]
     Route: 042

REACTIONS (4)
  - ACUTE RESPIRATORY FAILURE [None]
  - DISSEMINATED INTRAVASCULAR COAGULATION [None]
  - NEUROLEPTIC MALIGNANT SYNDROME [None]
  - RENAL FAILURE [None]
